FAERS Safety Report 8110962-7 (Version None)
Quarter: 2012Q1

REPORT INFORMATION
  Report Type: 
  Country: None (occurrence: None)
  Receive Date: 20120203
  Receipt Date: 20110111
  Transmission Date: 20120608
  Serious: Yes (Hospitalization, Disabling)
  Sender: FDA-Public Use
  Company Number: US-GLAXOSMITHKLINE-A0905447A

PATIENT
  Age: 54 Year
  Sex: Female
  Weight: 52.3 kg

DRUGS (2)
  1. TRILEPTAL [Concomitant]
     Dates: end: 20070801
  2. LAMICTAL [Suspect]
     Indication: CONVULSION
     Dosage: 100MG TWICE PER DAY
     Route: 048
     Dates: start: 20070815, end: 20071008

REACTIONS (2)
  - TOXIC EPIDERMAL NECROLYSIS [None]
  - STEVENS-JOHNSON SYNDROME [None]
